FAERS Safety Report 12186998 (Version 1)
Quarter: 2016Q1

REPORT INFORMATION
  Report Type: Spontaneous
  Country: US (occurrence: US)
  Receive Date: 20160317
  Receipt Date: 20160317
  Transmission Date: 20160526
  Serious: No
  Sender: FDA-Public Use
  Company Number: US-BRISTOL-MYERS SQUIBB COMPANY-BMS-2016-019108

PATIENT
  Sex: Female
  Weight: 59 kg

DRUGS (3)
  1. METOPROLOL. [Concomitant]
     Active Substance: METOPROLOL
     Indication: PRODUCT USED FOR UNKNOWN INDICATION
     Dosage: 25 MG, QD
     Route: 065
  2. SPIRONOLACTONE. [Concomitant]
     Active Substance: SPIRONOLACTONE
     Indication: PRODUCT USED FOR UNKNOWN INDICATION
     Dosage: 12.5 MG, QD
     Route: 065
  3. KENALOG-40 [Suspect]
     Active Substance: TRIAMCINOLONE ACETONIDE
     Indication: ROTATOR CUFF SYNDROME
     Route: 065

REACTIONS (11)
  - Dry mouth [Unknown]
  - Hyperhidrosis [Unknown]
  - Immune system disorder [Unknown]
  - Chest discomfort [Unknown]
  - Back pain [Unknown]
  - Bone pain [Unknown]
  - Cough [Unknown]
  - Oropharyngeal pain [Unknown]
  - Heart rate increased [Unknown]
  - Blister [Unknown]
  - Feeling abnormal [Unknown]
